FAERS Safety Report 4978554-6 (Version None)
Quarter: 2006Q2

REPORT INFORMATION
  Report Type: 
  Country: None (occurrence: None)
  Receive Date: 20060414
  Receipt Date: 20060330
  Transmission Date: 20061013
  Serious: Yes (Other)
  Sender: FDA-Public Use
  Company Number: 2006-051 (A)

PATIENT
  Age: 30 Year
  Sex: Male

DRUGS (6)
  1. AZITHROMYCIN [Suspect]
     Indication: GENITOURINARY CHLAMYDIA INFECTION
     Dosage: 500MG IV
     Route: 042
     Dates: start: 20060322, end: 20060323
  2. AZITHROMYCIN [Suspect]
     Indication: PROSTATITIS
     Dosage: 500MG IV
     Route: 042
     Dates: start: 20060322, end: 20060323
  3. AZITHROMYCIN [Suspect]
     Indication: TRICHOMONIASIS
     Dosage: 500MG IV
     Route: 042
     Dates: start: 20060322, end: 20060323
  4. TIBERAL (ORNIDAZOLE) [Suspect]
     Indication: GENITOURINARY CHLAMYDIA INFECTION
     Dosage: 500MG B.I.D.
     Dates: start: 20060319, end: 20060322
  5. TIBERAL (ORNIDAZOLE) [Suspect]
     Indication: PROSTATITIS
     Dosage: 500MG B.I.D.
     Dates: start: 20060319, end: 20060322
  6. TIBERAL (ORNIDAZOLE) [Suspect]
     Indication: TRICHOMONIASIS
     Dosage: 500MG B.I.D.
     Dates: start: 20060319, end: 20060322

REACTIONS (7)
  - ASTHENIA [None]
  - CHILLS [None]
  - DIZZINESS [None]
  - DRUG INTERACTION [None]
  - HYPOTENSION [None]
  - PALLOR [None]
  - PERIPHERAL COLDNESS [None]
